FAERS Safety Report 5100231-1 (Version None)
Quarter: 2006Q3

REPORT INFORMATION
  Report Type: 
  Country: None (occurrence: None)
  Receive Date: 20060731
  Receipt Date: 20060516
  Transmission Date: 20061208
  Serious: No
  Sender: FDA-Public Use
  Company Number: 2006PV013877

PATIENT
  Age: 52 Year
  Sex: Female

DRUGS (4)
  1. BYETTA [Suspect]
     Indication: DRUG USE FOR UNKNOWN INDICATION
     Dosage: 10 MG;BID;SC; 5 MCG;BID;SC
     Route: 058
     Dates: start: 20060226, end: 20060325
  2. BYETTA [Suspect]
     Indication: DRUG USE FOR UNKNOWN INDICATION
     Dosage: 10 MG;BID;SC; 5 MCG;BID;SC
     Route: 058
     Dates: start: 20060326
  3. LANTUS [Concomitant]
  4. HUMALOG [Concomitant]

REACTIONS (4)
  - BLOOD GLUCOSE ABNORMAL [None]
  - INJECTION SITE RASH [None]
  - INJECTION SITE URTICARIA [None]
  - WEIGHT DECREASED [None]
